FAERS Safety Report 23803093 (Version 1)
Quarter: 2024Q2

REPORT INFORMATION
  Report Type: Spontaneous
  Country: US (occurrence: None)
  Receive Date: 20240430
  Receipt Date: 20240430
  Transmission Date: 20240716
  Serious: Yes (Other)
  Sender: FDA-Public Use
  Company Number: None

PATIENT
  Age: 56 Year
  Sex: Female
  Weight: 72 kg

DRUGS (1)
  1. .DELTA.8-TETRAHYDROCANNABINOL\HERBALS [Suspect]
     Active Substance: .DELTA.8-TETRAHYDROCANNABINOL\HERBALS
     Dosage: 40 MG ORAL
     Route: 048

REACTIONS (5)
  - Anxiety [None]
  - Hallucination [None]
  - Palpitations [None]
  - Confusional state [None]
  - Hyporesponsive to stimuli [None]

NARRATIVE: CASE EVENT DATE: 20240427
